FAERS Safety Report 17373645 (Version 1)
Quarter: 2020Q1

REPORT INFORMATION
  Report Type: Spontaneous
  Country: US (occurrence: US)
  Receive Date: 20200206
  Receipt Date: 20200206
  Transmission Date: 20200409
  Serious: No
  Sender: FDA-Public Use
  Company Number: US-JNJFOC-20200123872

PATIENT
  Age: 2 Year
  Sex: Female
  Weight: 12.26 kg

DRUGS (1)
  1. CHILDRENS TYLENOL [Suspect]
     Active Substance: ACETAMINOPHEN
     Indication: PYREXIA
     Route: 048
     Dates: start: 20200106, end: 20200106

REACTIONS (2)
  - Rash [Recovering/Resolving]
  - Ear disorder [Not Recovered/Not Resolved]

NARRATIVE: CASE EVENT DATE: 20200106
